FAERS Safety Report 11599221 (Version 1)
Quarter: 2015Q4

REPORT INFORMATION
  Report Type: Spontaneous
  Country: US (occurrence: US)
  Receive Date: 20151006
  Receipt Date: 20151006
  Transmission Date: 20160304
  Serious: Yes (Other)
  Sender: FDA-Public Use
  Company Number: US-CELGENEUS-USA-2015096287

PATIENT
  Sex: Female

DRUGS (1)
  1. THALOMID [Suspect]
     Active Substance: THALIDOMIDE
     Indication: LICHENIFICATION
     Dosage: 100 MILLIGRAM
     Route: 048
     Dates: start: 201508

REACTIONS (4)
  - Blood pressure decreased [Unknown]
  - Dehydration [Unknown]
  - Heart rate decreased [Unknown]
  - Syncope [Unknown]

NARRATIVE: CASE EVENT DATE: 2015
